FAERS Safety Report 25913156 (Version 5)
Quarter: 2025Q4

REPORT INFORMATION
  Report Type: Report from Study
  Country: US (occurrence: US)
  Receive Date: 20251013
  Receipt Date: 20251229
  Transmission Date: 20260118
  Serious: Yes (Other)
  Sender: ACADIA PHARMACEUTICALS
  Company Number: US-ACADIA PHARMACEUTICALS INC.-ACA-2025-PIM-011016

PATIENT
  Age: 75 Year
  Sex: Male

DRUGS (22)
  1. NUPLAZID [Suspect]
     Active Substance: PIMAVANSERIN TARTRATE
     Indication: Parkinson^s disease psychosis
     Dosage: 34 MILLIGRAM, QD
     Route: 048
     Dates: start: 20251003
  2. WELLBUTRIN XL [Concomitant]
     Active Substance: BUPROPION HYDROCHLORIDE
     Dosage: 1 DOSAGE FORM, QD (24 HR, 300 MG TTOTAL EVERY MORNING) (90 TABLET DISPENSED) 3 TIMES REFILLED
     Route: 048
  3. SENNA S [Concomitant]
     Active Substance: DOCUSATE SODIUM\SENNOSIDES
  4. LINZESS [Concomitant]
     Active Substance: LINACLOTIDE
     Dosage: 1 DOSAGE FORM, QD (TAKE 1 CAPSULE (290 MG CAPSULE EVERY MORNING) BEFORE BREAKFAST)
     Route: 048
  5. CENTRUM SILVER [ASCORBIC ACID;BETACAROTENE;BIOTIN;CALCIUM PHOSPHATE;CH [Concomitant]
     Dosage: UNK (UNK (MULTIVIT-MIN-FA-LYCOPEN-LUTEIN (0.4-300-250 MG-MCG-MCG TABLET)
     Route: 048
  6. RIVASTIGMINE [Concomitant]
     Active Substance: RIVASTIGMINE
     Dosage: 9.5MG/24HR PATCH TD24
  7. CARBIDOPA, LEVODOPA AND ENTACAPONE [Concomitant]
     Active Substance: CARBIDOPA\ENTACAPONE\LEVODOPA
  8. ATORVASTATIN CALCIUM [Concomitant]
     Active Substance: ATORVASTATIN CALCIUM
  9. ZOLOFT [Concomitant]
     Active Substance: SERTRALINE HYDROCHLORIDE
     Dosage: 1 DOSAGE FORM, QD (50 MG TOTAL) (90 TABLET DISPENSED) (3 TIMES REFILLED)
     Route: 048
  10. CYANOCOBALAMIN\FOLIC ACID [Concomitant]
     Active Substance: CYANOCOBALAMIN\FOLIC ACID
  11. MIRABEGRON [Concomitant]
     Active Substance: MIRABEGRON
     Dosage: ER 24 HR
  12. TROSPIUM CHLORIDE [Concomitant]
     Active Substance: TROSPIUM CHLORIDE
  13. SINEMET CR [Concomitant]
     Active Substance: CARBIDOPA\LEVODOPA
     Dosage: 3.5 DOSAGE FORM, TID (TAKE 2 TABS AT 7:30 AM 11:30 AM AND 1.5 TABS AT 4:30PM)(540 TABLET DISPENSED)
     Route: 048
  14. LIPITOR [Concomitant]
     Active Substance: ATORVASTATIN CALCIUM
     Dosage: 40 MILLIGRAM, QD
     Route: 048
  15. VITAMIN D3 [Concomitant]
     Active Substance: CHOLECALCIFEROL
     Dosage: UNK ((2,000 UNIT)
     Route: 048
  16. VITAMIN B12 [Concomitant]
     Active Substance: CYANOCOBALAMIN
     Dosage: 250 MICROGRAM
     Route: 048
  17. MYRBETRIQ [Concomitant]
     Active Substance: MIRABEGRON
     Dosage: 1 DOSAGE FORM, QD (TAKE 1 TABLET (50 MG)
     Route: 048
  18. SENOKOT [Concomitant]
     Active Substance: SENNOSIDES
     Dosage: 1 DOSAGE FORM, QD (TPTAL 8.6 MG)
     Route: 048
  19. SANCTURA [Concomitant]
     Active Substance: TROSPIUM CHLORIDE
     Dosage: 1 DOSAGE FORM, QD (20 MG TOTAL, EVERY MORNING)
     Route: 048
  20. EXELON [Concomitant]
     Active Substance: RIVASTIGMINE TARTRATE
     Dosage: UNK(9.5 MG/24 HOUR PATCH (APPLY TO SKIN DAILY) (90 PATCHES DISPENSED AND 3 TIMES REFILLED
  21. EXELON [Concomitant]
     Active Substance: RIVASTIGMINE TARTRATE
     Dosage: RIVASTIGMINE (EXELON PATCH) 13.3 MG/24 HOUR PATCH (3 REFILLS)
     Route: 062
     Dates: start: 20251013
  22. SEROQUEL [Concomitant]
     Active Substance: QUETIAPINE FUMARATE
     Indication: Agitation
     Dosage: UNK(TAKE 1/2 TO 1 TAB BY MOUTH EVERY 8 HOURS IF NEEDED FOR AGITATION(2 REFILLS))
     Route: 048
     Dates: start: 20251013

REACTIONS (30)
  - Parkinson^s disease [Unknown]
  - Hallucination [Unknown]
  - Disorientation [Unknown]
  - Aphasia [Unknown]
  - Dysarthria [Unknown]
  - Speech disorder [Unknown]
  - Language disorder [Unknown]
  - Defiant behaviour [Unknown]
  - Emotional distress [Unknown]
  - Nightmare [Unknown]
  - Taste disorder [Unknown]
  - Eating disorder [Unknown]
  - Somnolence [Unknown]
  - Confusional state [Unknown]
  - Gait disturbance [Unknown]
  - Drug intolerance [Unknown]
  - Feeling abnormal [Unknown]
  - Loss of personal independence in daily activities [Unknown]
  - Depression [Unknown]
  - Anxiety [Unknown]
  - Cognitive disorder [Unknown]
  - Condition aggravated [Unknown]
  - Bradykinesia [Unknown]
  - Tremor [Unknown]
  - Blood pressure abnormal [Unknown]
  - Walking aid user [Unknown]
  - Insomnia [Unknown]
  - Weight decreased [Unknown]
  - Dysphonia [Unknown]
  - Extra dose administered [Unknown]

NARRATIVE: CASE EVENT DATE: 20251001
